FAERS Safety Report 4949106-9 (Version None)
Quarter: 2006Q1

REPORT INFORMATION
  Report Type: 
  Country: None (occurrence: None)
  Receive Date: 20060321
  Receipt Date: 20051031
  Transmission Date: 20060701
  Serious: Yes (Hospitalization, Disabling)
  Sender: FDA-Public Use
  Company Number: US-MERCK-0511USA00123

PATIENT
  Age: 60 Year
  Sex: Female
  Weight: 68 kg

DRUGS (26)
  1. VIOXX [Suspect]
     Indication: ARTHRITIS
     Route: 048
     Dates: start: 19990806, end: 20020306
  2. ACYCLOVIR [Concomitant]
     Route: 065
  3. ALLEGRA [Concomitant]
     Route: 065
  4. ANTIVERT [Concomitant]
     Route: 065
  5. AVELOX [Concomitant]
     Route: 065
  6. ANTIPYRINE AND BENZOCAINE [Concomitant]
     Route: 065
  7. CIPRO [Concomitant]
     Route: 065
  8. DARVOCET [Concomitant]
     Route: 065
  9. ERYTHROMYCIN [Concomitant]
     Route: 065
  10. FLONASE [Concomitant]
     Route: 065
  11. GUAIFENEX PSE [Concomitant]
     Route: 065
  12. HYDROCHLOROTHIAZIDE [Concomitant]
     Route: 065
  13. LASIX [Concomitant]
     Route: 065
  14. LOPRESSOR [Concomitant]
     Route: 065
  15. LOTEMAX [Concomitant]
     Route: 065
  16. MACROBID [Concomitant]
     Route: 065
  17. METHOCARBAMOL [Concomitant]
     Route: 065
  18. NYSTATIN [Concomitant]
     Route: 065
  19. PREMARIN [Concomitant]
     Route: 065
  20. PREVACID [Concomitant]
     Route: 065
  21. ACETAMINOPHEN AND PROPOXYPHENE HYDROCHLORIDE [Concomitant]
     Route: 065
  22. PROPOXYPHENE NAPSYLATE [Concomitant]
     Route: 065
  23. TOBRADEX [Concomitant]
     Route: 065
  24. VALIUM [Concomitant]
     Route: 065
  25. ZITHROMAX [Concomitant]
     Route: 065
  26. ZYRTEC [Concomitant]
     Route: 065

REACTIONS (6)
  - CATARACT [None]
  - CEREBROVASCULAR ACCIDENT [None]
  - DYSPEPSIA [None]
  - SKIN DISORDER [None]
  - TRIGEMINAL NEURALGIA [None]
  - VISION BLURRED [None]
